FAERS Safety Report 19013290 (Version 1)
Quarter: 2021Q1

REPORT INFORMATION
  Report Type: Report from Study
  Country: DE (occurrence: DE)
  Receive Date: 20210315
  Receipt Date: 20210315
  Transmission Date: 20210420
  Serious: Yes (Hospitalization)
  Sender: FDA-Public Use
  Company Number: DE-TAKEDA-ALL1-2014-00204

PATIENT
  Age: 18 Year
  Sex: Male
  Weight: 45 kg

DRUGS (6)
  1. IDURSULFASE [Suspect]
     Active Substance: IDURSULFASE
     Indication: MUCOPOLYSACCHARIDOSIS II
     Dosage: 24 MILLIGRAM
     Route: 041
     Dates: start: 20080924
  2. LORAZEPAM. [Concomitant]
     Active Substance: LORAZEPAM
     Indication: SLEEP DISORDER
     Dosage: 1 MG, AS REQ^D
     Route: 060
     Dates: start: 20100729, end: 20121029
  3. IDURSULFASE [Suspect]
     Active Substance: IDURSULFASE
     Dosage: 18 MILLIGRAM
     Route: 041
     Dates: start: 20060906
  4. LAMOTRIGINE. [Concomitant]
     Active Substance: LAMOTRIGINE
     Indication: NERVOUS SYSTEM DISORDER
     Dosage: 125 MG, 2X/DAY:BID
     Route: 048
     Dates: start: 20101201
  5. GENISTEIN [Concomitant]
     Active Substance: GENISTEIN
     Indication: PRODUCT USED FOR UNKNOWN INDICATION
     Dosage: 8 MG, 2X/DAY:BID
     Route: 048
     Dates: start: 2010, end: 20120131
  6. MACROGOL [Concomitant]
     Active Substance: POLYETHYLENE GLYCOLS
     Indication: GASTROINTESTINAL DISORDER
     Dosage: 2 DF, 1X/DAY:QD
     Route: 048
     Dates: start: 2009

REACTIONS (2)
  - Gastroenteritis [Unknown]
  - Dehydration [Recovered/Resolved]

NARRATIVE: CASE EVENT DATE: 20111129
